FAERS Safety Report 26200591 (Version 1)
Quarter: 2025Q4

REPORT INFORMATION
  Report Type: Report from Study
  Country: JP (occurrence: JP)
  Receive Date: 20251225
  Receipt Date: 20251225
  Transmission Date: 20260118
  Serious: Yes (Hospitalization, Other)
  Sender: AMGEN
  Company Number: JP-BEH-2025230355

PATIENT
  Age: 76 Year
  Sex: Female
  Weight: 46.3 kg

DRUGS (5)
  1. AVACOPAN [Suspect]
     Active Substance: AVACOPAN
     Indication: Granulomatosis with polyangiitis
     Dosage: 30 MG, BID
     Route: 048
     Dates: start: 20230307, end: 20230406
  2. RITUXIMAB [Concomitant]
     Active Substance: RITUXIMAB
     Indication: Granulomatosis with polyangiitis
     Dosage: 510 MILLIGRAM, QD
     Route: 040
     Dates: start: 20230313, end: 20230313
  3. RITUXIMAB [Concomitant]
     Active Substance: RITUXIMAB
     Dosage: 500 MILLIGRAM, QD
     Route: 040
     Dates: start: 20230320, end: 20230320
  4. RITUXIMAB [Concomitant]
     Active Substance: RITUXIMAB
     Dosage: 510 MILLIGRAM, QD
     Route: 040
     Dates: start: 20230327, end: 20230327
  5. VONOPRAZAN FUMARATE [Concomitant]
     Active Substance: VONOPRAZAN FUMARATE
     Dosage: UNK
     Route: 048

REACTIONS (2)
  - Hepatic function abnormal [Recovered/Resolved]
  - Drug-induced liver injury [Unknown]

NARRATIVE: CASE EVENT DATE: 20230101
